FAERS Safety Report 16236549 (Version 9)
Quarter: 2020Q1

REPORT INFORMATION
  Report Type: Report from Study
  Country: US (occurrence: US)
  Receive Date: 20190425
  Receipt Date: 20200226
  Transmission Date: 20200409
  Serious: Yes (Other)
  Sender: FDA-Public Use
  Company Number: US-TESARO-2019-TSO01630-US

PATIENT
  Age: 68 Year
  Sex: Female
  Weight: 83 kg

DRUGS (8)
  1. NIRAPARIB [Suspect]
     Active Substance: NIRAPARIB
     Dosage: 300 MG, QD IN EVENING
     Route: 048
     Dates: start: 20190402, end: 20190415
  2. NIRAPARIB [Suspect]
     Active Substance: NIRAPARIB
     Indication: OVARIAN CANCER STAGE IV
     Dosage: 300 MG DAILY
     Dates: start: 201903
  3. CARVEDILOL. [Concomitant]
     Active Substance: CARVEDILOL
     Indication: PRODUCT USED FOR UNKNOWN INDICATION
     Dosage: 3.125 UNK
  4. NIRAPARIB [Suspect]
     Active Substance: NIRAPARIB
     Dosage: 200 MG, QD
     Route: 048
     Dates: end: 201907
  5. NIRAPARIB [Suspect]
     Active Substance: NIRAPARIB
     Dosage: 200 MG, QD
  6. CARVEDILOL. [Concomitant]
     Active Substance: CARVEDILOL
     Dosage: 6.5 UNK
  7. NIRAPARIB [Suspect]
     Active Substance: NIRAPARIB
     Dosage: 200 MG, QD AT 8:00PM - AFTER DINNER
     Route: 048
     Dates: start: 20191021
  8. NIRAPARIB [Suspect]
     Active Substance: NIRAPARIB
     Dosage: 200 MG, QD 3PM WITH FOOD
     Route: 048

REACTIONS (29)
  - Cardiac flutter [Unknown]
  - Blood glucose increased [Unknown]
  - Cough [Not Recovered/Not Resolved]
  - Dizziness [Not Recovered/Not Resolved]
  - Oropharyngeal pain [Not Recovered/Not Resolved]
  - Neoplasm progression [Not Recovered/Not Resolved]
  - Lymphadenopathy [Unknown]
  - Palpitations [Not Recovered/Not Resolved]
  - Product dose omission [Unknown]
  - Glossitis [Unknown]
  - Haemoglobin abnormal [Unknown]
  - Hypokalaemia [Unknown]
  - Blood creatinine abnormal [Unknown]
  - Pyrexia [Unknown]
  - Hyponatraemia [Unknown]
  - Abdominal operation [Unknown]
  - Malaise [Unknown]
  - Haematocrit abnormal [Unknown]
  - Peripheral swelling [Not Recovered/Not Resolved]
  - Nausea [Recovered/Resolved]
  - Blood pressure increased [Recovered/Resolved]
  - Blood albumin abnormal [Unknown]
  - Food craving [Unknown]
  - Constipation [Recovering/Resolving]
  - Headache [Not Recovered/Not Resolved]
  - Glossodynia [Not Recovered/Not Resolved]
  - Decreased appetite [Recovering/Resolving]
  - Back pain [Not Recovered/Not Resolved]
  - Hypomagnesaemia [Unknown]

NARRATIVE: CASE EVENT DATE: 201904
